FAERS Safety Report 4334682-X (Version None)
Quarter: 2004Q2

REPORT INFORMATION
  Report Type: 
  Country: None (occurrence: None)
  Receive Date: 20040408
  Receipt Date: 20040302
  Transmission Date: 20050107
  Serious: Yes (Death, Life-Threatening, Hospitalization)
  Sender: FDA-Public Use
  Company Number: GB-BRISTOL-MYERS SQUIBB COMPANY-12521829

PATIENT
  Age: 57 Year
  Sex: Male

DRUGS (10)
  1. CETUXIMAB [Suspect]
     Indication: COLORECTAL CANCER METASTATIC
     Dosage: THERAPY INITIATED ON 12-FEB-2004
     Route: 042
     Dates: start: 20040226, end: 20040226
  2. IRINOTECAN [Suspect]
     Indication: COLORECTAL CANCER METASTATIC
     Dosage: THERAPY INITIATED 12-FEB-2004
     Route: 042
     Dates: start: 20040212, end: 20040212
  3. CO-CODAMOL [Concomitant]
     Dosage: 6 TABLETS
     Route: 048
     Dates: start: 20030601
  4. ORAMORPH SR [Concomitant]
     Route: 048
     Dates: start: 20040201
  5. ANTIHISTAMINE NOS [Concomitant]
     Route: 048
     Dates: start: 20040226, end: 20040301
  6. WARFARIN SODIUM [Concomitant]
     Route: 048
     Dates: start: 20040201
  7. ATROPINE [Concomitant]
     Dates: start: 20040212
  8. ONDANSETRON HCL [Concomitant]
     Dosage: ALSO ADMINISTERED ORALLY 8MG(TOTAL DAILY DOSE)
     Route: 042
     Dates: start: 20040212
  9. DEXAMETHASONE [Concomitant]
     Dosage: 4 MG(TOTAL DAILY DOSES)STARTING 12-FEB-2004,6MG(TOTAL DAILY DOSE)STARTING 13-FEB-2004
     Route: 042
     Dates: start: 20040212
  10. METOCLOPRAMIDE [Concomitant]
     Dosage: DOSE 40-80 MG (TOTAL DAILY DOSE)
     Route: 048
     Dates: start: 20040213

REACTIONS (7)
  - ARTHRALGIA [None]
  - COLONIC OBSTRUCTION [None]
  - DYSPNOEA [None]
  - INTESTINAL PERFORATION [None]
  - LARGE INTESTINE PERFORATION [None]
  - PERITONITIS [None]
  - SEPSIS [None]
